FAERS Safety Report 6244114-2 (Version None)
Quarter: 2009Q2

REPORT INFORMATION
  Report Type: 
  Country: None (occurrence: None)
  Receive Date: 20090625
  Receipt Date: 20071114
  Transmission Date: 20091009
  Serious: Yes (Other)
  Sender: FDA-Public Use
  Company Number: US-ASTRAZENECA-2007UW14292

PATIENT
  Age: 45 Year
  Sex: Male
  Weight: 101.6 kg

DRUGS (81)
  1. SEROQUEL [Suspect]
     Indication: SCHIZOPHRENIA
     Dosage: 100-400 MG
     Route: 048
     Dates: start: 20051026, end: 20071212
  2. SEROQUEL [Suspect]
     Indication: DEPRESSION
     Dosage: 100-400 MG
     Route: 048
     Dates: start: 20051026, end: 20071212
  3. SEROQUEL [Suspect]
     Indication: BIPOLAR DISORDER
     Dosage: 100-400 MG
     Route: 048
     Dates: start: 20051026, end: 20071212
  4. SEROQUEL [Suspect]
     Indication: ANXIETY
     Dosage: 100-400 MG
     Route: 048
     Dates: start: 20051026, end: 20071212
  5. SEROQUEL [Suspect]
     Indication: SLEEP DISORDER
     Dosage: 100-400 MG
     Route: 048
     Dates: start: 20051026, end: 20071212
  6. SEROQUEL [Suspect]
     Dosage: 100 MG ONCE DAILY, INCREASED TO 200 MG ONCE DAILY, THEN INCREASED TO 400 MG ONCE DAILY
     Route: 048
     Dates: start: 20051101, end: 20080219
  7. SEROQUEL [Suspect]
     Dosage: 100 MG ONCE DAILY, INCREASED TO 200 MG ONCE DAILY, THEN INCREASED TO 400 MG ONCE DAILY
     Route: 048
     Dates: start: 20051101, end: 20080219
  8. SEROQUEL [Suspect]
     Dosage: 100 MG ONCE DAILY, INCREASED TO 200 MG ONCE DAILY, THEN INCREASED TO 400 MG ONCE DAILY
     Route: 048
     Dates: start: 20051101, end: 20080219
  9. SEROQUEL [Suspect]
     Dosage: 100 MG ONCE DAILY, INCREASED TO 200 MG ONCE DAILY, THEN INCREASED TO 400 MG ONCE DAILY
     Route: 048
     Dates: start: 20051101, end: 20080219
  10. SEROQUEL [Suspect]
     Dosage: 100 MG ONCE DAILY, INCREASED TO 200 MG ONCE DAILY, THEN INCREASED TO 400 MG ONCE DAILY
     Route: 048
     Dates: start: 20051101, end: 20080219
  11. SEROQUEL [Suspect]
     Route: 048
     Dates: start: 20080414
  12. SEROQUEL [Suspect]
     Route: 048
     Dates: start: 20080414
  13. SEROQUEL [Suspect]
     Route: 048
     Dates: start: 20080414
  14. SEROQUEL [Suspect]
     Route: 048
     Dates: start: 20080414
  15. SEROQUEL [Suspect]
     Route: 048
     Dates: start: 20080414
  16. RISPERDAL [Concomitant]
     Indication: SCHIZOAFFECTIVE DISORDER
     Dates: start: 20011023, end: 20051017
  17. RISPERDAL [Concomitant]
     Indication: HALLUCINATION
     Dates: start: 20011023, end: 20051017
  18. RISPERDAL [Concomitant]
     Dosage: 2-4 MG
     Route: 048
     Dates: start: 20020912
  19. RISPERDAL [Concomitant]
     Dosage: 2-4 MG
     Route: 048
     Dates: start: 20020912
  20. ZYPREXA [Concomitant]
     Dosage: 5 MG ONCE DAILY INCREASED TO 10 MG ONCE DAILY
     Dates: start: 20011030
  21. ZYPREXA [Concomitant]
     Route: 048
     Dates: start: 20050621, end: 20080414
  22. LUNESTA [Concomitant]
     Route: 048
     Dates: start: 20051020
  23. TORADOL [Concomitant]
  24. LORCET-HD [Concomitant]
  25. LEVAQUIN [Concomitant]
     Route: 048
     Dates: start: 20050621
  26. PERCOCET [Concomitant]
  27. ALBUTEROL [Concomitant]
     Indication: DYSPNOEA
     Dosage: AS REQUIRED
     Dates: start: 20061117
  28. ALBUTEROL [Concomitant]
  29. ADVAIR DISKUS 100/50 [Concomitant]
     Dosage: 250/50 MCG
  30. ADVAIR DISKUS 100/50 [Concomitant]
     Route: 048
     Dates: start: 20070215
  31. METFORMIN [Concomitant]
  32. AVANDAMET [Concomitant]
     Dosage: 4 MG/100 MG
  33. AVANDAMET [Concomitant]
     Dosage: 4/1000 MG EVERYDAY AND INCREASED TO TWICE A DAY
     Route: 048
     Dates: start: 20061220
  34. PENICILLIN [Concomitant]
  35. CLONIDINE [Concomitant]
     Dates: start: 20070111
  36. DEPAKOTE [Concomitant]
     Dates: start: 20070514
  37. FLOXIN [Concomitant]
     Dosage: 0.3 PERCENT
  38. QUINAPRIL [Concomitant]
     Indication: SLEEP DISORDER
     Route: 048
     Dates: start: 20060425
  39. LABETALOL HCL [Concomitant]
     Dosage: 100 MG EVERY DAY, 200 MG TWO TIMES A DAY
     Route: 048
     Dates: start: 20060909
  40. LABETALOL HCL [Concomitant]
  41. HYDROCODONE BITARTRATE + ACETAMINOPHEN [Concomitant]
     Indication: BACK PAIN
     Dosage: 10-650 MG ONE TABLET EVERY FOUR TO EIGHT HOURS AS REQUIRED
     Route: 048
     Dates: start: 20020614
  42. HYDROCODONE BITARTRATE + ACETAMINOPHEN [Concomitant]
     Dosage: 5 MG/325 MG
  43. CYCLOBENZAPRINE [Concomitant]
  44. TRAMADOL HCL [Concomitant]
  45. PIROXICAM [Concomitant]
     Route: 048
     Dates: start: 20070123
  46. GABAPENTIN [Concomitant]
  47. LOTREL [Concomitant]
     Dosage: 10/10 MG
     Route: 048
     Dates: start: 20070123
  48. LOTREL [Concomitant]
     Dosage: 10/40 MG
  49. AMOXICILLIN + CLAVULANATE POTASSIUM [Concomitant]
  50. HYDROCODONE BITARTRATE + ACETAMINOPHEN [Concomitant]
     Dosage: 7.5/200 MG
  51. HYDROCHLOROTHIAZIDE [Concomitant]
  52. DIAZEPAM [Concomitant]
     Route: 048
     Dates: start: 20070306
  53. DIAZEPAM [Concomitant]
  54. PANLOR-DC [Concomitant]
  55. NAPROXEN [Concomitant]
     Indication: ARTHRITIS
     Route: 048
     Dates: start: 20070111
  56. NAPROXEN [Concomitant]
  57. OXYCODONE HCL [Concomitant]
  58. TRIAMTERENE AND HYDROCHLOROTHIAZIDE [Concomitant]
     Dosage: 37.5-25 MG
     Route: 048
     Dates: start: 20020617
  59. NORVASC [Concomitant]
     Route: 048
     Dates: start: 20020617
  60. METOPROLOL TARTRATE [Concomitant]
     Route: 048
     Dates: start: 20020812
  61. XANAX [Concomitant]
     Dates: start: 19991118
  62. CARBAMAZEPINE [Concomitant]
     Indication: MOOD SWINGS
     Route: 048
     Dates: start: 20020912
  63. PAXIL [Concomitant]
     Indication: DEPRESSION
     Dosage: 20-40 MG
     Route: 048
     Dates: start: 20020912
  64. NIFEDIPINE [Concomitant]
     Route: 048
     Dates: start: 20021010
  65. REMERON [Concomitant]
     Route: 048
     Dates: start: 20020912
  66. UNIPHYL [Concomitant]
     Indication: DYSPNOEA
     Route: 048
     Dates: start: 20060328
  67. PENICILLIN V POTASSIUM [Concomitant]
     Route: 048
     Dates: start: 20060713
  68. LOVASTATIN [Concomitant]
     Route: 048
     Dates: start: 20060619
  69. GABITRIL [Concomitant]
     Indication: DIABETIC NEUROPATHY
     Route: 048
     Dates: start: 20070111
  70. CYMBALTA [Concomitant]
     Route: 048
     Dates: start: 20070109
  71. LORAZEPAM [Concomitant]
     Route: 048
     Dates: start: 20070111
  72. FLUOXETINE HCL [Concomitant]
     Route: 048
     Dates: start: 20070816
  73. DICLOFENAC SODIUM [Concomitant]
     Route: 048
     Dates: start: 20070507
  74. ELAVIL [Concomitant]
     Indication: SLEEP DISORDER
     Dates: start: 20071212
  75. ATENOLOL [Concomitant]
     Dates: start: 20071212
  76. LISINOPRIL [Concomitant]
     Dates: start: 20071212
  77. GLYBURIDE [Concomitant]
     Dates: start: 20070718
  78. TOPROL-XL [Concomitant]
     Indication: BLOOD PRESSURE
     Route: 048
     Dates: start: 20040621
  79. WELLBUTRIN SR [Concomitant]
     Dates: start: 20040621
  80. KLONOPIN [Concomitant]
     Dates: start: 20011029
  81. AMBIEN [Concomitant]
     Dates: start: 20011029

REACTIONS (5)
  - CHRONIC OBSTRUCTIVE PULMONARY DISEASE [None]
  - DIABETES MELLITUS INADEQUATE CONTROL [None]
  - DIABETIC NEUROPATHY [None]
  - HYPERGLYCAEMIA [None]
  - TYPE 2 DIABETES MELLITUS [None]
